FAERS Safety Report 18277007 (Version 1)
Quarter: 2020Q3

REPORT INFORMATION
  Report Type: Spontaneous
  Country: DK (occurrence: DK)
  Receive Date: 20200917
  Receipt Date: 20200917
  Transmission Date: 20201103
  Serious: Yes (Death, Hospitalization)
  Sender: FDA-Public Use
  Company Number: DK-ACCORD-201328

PATIENT
  Age: 67 Year
  Sex: Female

DRUGS (21)
  1. CETIRIZINE [Concomitant]
     Active Substance: CETIRIZINE HYDROCHLORIDE
     Indication: URTICARIA
     Dosage: STRENGTH: 10 MG.
     Route: 048
     Dates: start: 20190827
  2. FLUPENTIXOL/FLUPENTIXOL DECANOATE/FLUPENTIXOL DIHYDROCHLORIDE [Concomitant]
     Active Substance: FLUPENTIXOL
     Indication: DEPRESSION
     Dosage: STRENGTH: 1 MG.
     Route: 048
     Dates: start: 20161011, end: 20200816
  3. METFORMIN [Concomitant]
     Active Substance: METFORMIN HYDROCHLORIDE
     Indication: TYPE 2 DIABETES MELLITUS
     Dosage: STRENGTH: 500 MG.
     Route: 048
     Dates: start: 20190718
  4. OXAZEPAM. [Concomitant]
     Active Substance: OXAZEPAM
     Indication: SEDATIVE THERAPY
     Dosage: STRENGTH: 15 MG.
     Route: 048
     Dates: start: 20170518
  5. ZOPICLONE [Concomitant]
     Active Substance: ZOPICLONE
     Indication: INSOMNIA
     Dosage: STRENGTH: 7.5 MG.
     Route: 048
     Dates: start: 20181227
  6. PARACETAMOL [Concomitant]
     Active Substance: ACETAMINOPHEN
     Indication: PAIN
     Dosage: STRENGTH: 500 MG.
     Route: 048
     Dates: start: 20181227
  7. RANITIDINE. [Concomitant]
     Active Substance: RANITIDINE
     Indication: GASTROOESOPHAGEAL REFLUX DISEASE
     Dosage: STRENGTH: 150 MG.
     Route: 048
     Dates: start: 20190716
  8. AMITRIPTYLINE [Suspect]
     Active Substance: AMITRIPTYLINE
     Indication: PAIN
     Dosage: STRENGTH: 10 + 25 MG.
     Route: 048
     Dates: start: 20140519, end: 20200816
  9. LANSOPRAZOLE. [Concomitant]
     Active Substance: LANSOPRAZOLE
     Indication: PROPHYLAXIS AGAINST GASTROINTESTINAL ULCER
     Dosage: STRENGTH: 30 MG.
     Route: 048
     Dates: start: 20141201
  10. BETAHISTINE [Concomitant]
     Active Substance: BETAHISTINE
     Indication: TINNITUS
     Dosage: STRENGTH: 8 MG.
     Route: 048
     Dates: start: 20190903
  11. BENDROFLUMETHIAZIDE\POTASSIUM CHLORIDE [Concomitant]
     Active Substance: BENDROFLUMETHIAZIDE\POTASSIUM CHLORIDE
     Indication: DIURETIC THERAPY
     Dosage: STRENGTH: 2.5+573 MG.
     Route: 048
     Dates: start: 20180514
  12. ATORVASTATIN [Concomitant]
     Active Substance: ATORVASTATIN
     Indication: HYPERCHOLESTEROLAEMIA
     Dosage: STRENGTH: 40 MG.
     Route: 048
     Dates: start: 20180822
  13. SALBUTAMOL [Concomitant]
     Active Substance: ALBUTEROL
     Indication: BRONCHOSPASM
     Dosage: STRENGTH: 0.1 MG/DOSE.
     Route: 055
     Dates: start: 20140203
  14. CITALOPRAM [Concomitant]
     Active Substance: CITALOPRAM HYDROBROMIDE
     Indication: DEPRESSION
     Dosage: STRENGTH: 40 MG.
     Route: 048
     Dates: start: 20121008, end: 20200816
  15. FLUTICASONE. [Concomitant]
     Active Substance: FLUTICASONE
     Indication: RHINORRHOEA
     Dosage: STRENGTH: 50 MICROGRAMS/DOSE.
     Route: 045
     Dates: start: 20170110
  16. CHLORPROTHIXENE [Concomitant]
     Active Substance: CHLORPROTHIXENE
     Indication: SEDATIVE THERAPY
     Dosage: STRENGTH: 15 MG.
     Route: 048
     Dates: start: 20150105
  17. OLODATEROL/TIOTROPIUM [Concomitant]
     Active Substance: OLODATEROL HYDROCHLORIDE\TIOTROPIUM BROMIDE MONOHYDRATE
     Indication: CHRONIC OBSTRUCTIVE PULMONARY DISEASE
     Dosage: STRENGTH: 2.5 + 2.5 MICROGRAMS.
     Route: 055
     Dates: start: 20190121
  18. MORPHINE [Concomitant]
     Active Substance: MORPHINE
     Indication: PAIN
     Dosage: STRENGTH: 10 MG.
     Route: 048
     Dates: start: 20181212
  19. IBUPROFEN. [Concomitant]
     Active Substance: IBUPROFEN
     Indication: PAIN
     Dosage: STRENGTH: 600 MG.
     Route: 048
     Dates: start: 20190402
  20. KETOGAN [Concomitant]
     Indication: PAIN
     Dosage: STRENGTH: 5+25 MG.
     Route: 048
     Dates: start: 20181227
  21. PROPRANOLOL [Concomitant]
     Active Substance: PROPRANOLOL HYDROCHLORIDE
     Indication: TREMOR
     Dosage: STRENGTH: 40 MG.
     Route: 048
     Dates: start: 20181227

REACTIONS (7)
  - Confusional state [Unknown]
  - Depressed level of consciousness [Unknown]
  - Neuroleptic malignant syndrome [Fatal]
  - Pyrexia [Unknown]
  - Multiple organ dysfunction syndrome [Fatal]
  - Hypoxia [Unknown]
  - Seizure [Unknown]

NARRATIVE: CASE EVENT DATE: 202008
